FAERS Safety Report 6718990-0 (Version None)
Quarter: 2010Q2

REPORT INFORMATION
  Report Type: 
  Country: None (occurrence: None)
  Receive Date: 20100511
  Receipt Date: 20100504
  Transmission Date: 20101027
  Serious: Yes (Other)
  Sender: FDA-Public Use
  Company Number: US-BAXTER-2010BH012523

PATIENT
  Age: 13 Year
  Sex: Female

DRUGS (1)
  1. BEBULIN [Suspect]
     Indication: DRUG USE FOR UNKNOWN INDICATION
     Route: 065

REACTIONS (2)
  - FIBRIN D DIMER INCREASED [None]
  - THROMBOSIS [None]
